FAERS Safety Report 7255424-4 (Version None)
Quarter: 2011Q1

REPORT INFORMATION
  Report Type: 
  Country: None (occurrence: None)
  Receive Date: 20110129
  Receipt Date: 20100413
  Transmission Date: 20110831
  Serious: No
  Sender: FDA-Public Use
  Company Number: US-ABBOTT-10P-163-0637997-00

PATIENT
  Sex: Female
  Weight: 99.88 kg

DRUGS (1)
  1. HUMIRA [Suspect]
     Indication: CROHN'S DISEASE
     Route: 058
     Dates: start: 20100129, end: 20100326

REACTIONS (4)
  - ANORECTAL DISORDER [None]
  - GASTRITIS [None]
  - DRUG INEFFECTIVE [None]
  - GASTRIC ULCER [None]
